FAERS Safety Report 7198367-7 (Version None)
Quarter: 2010Q4

REPORT INFORMATION
  Report Type: 
  Country: None (occurrence: None)
  Receive Date: 20101227
  Receipt Date: 20101224
  Transmission Date: 20110411
  Serious: Yes (Hospitalization)
  Sender: FDA-Public Use
  Company Number: IN-BRISTOL-MYERS SQUIBB COMPANY-15451370

PATIENT
  Age: 23 Year
  Sex: Female

DRUGS (4)
  1. ARIPIPRAZOLE [Suspect]
     Indication: IRRITABILITY
  2. ARIPIPRAZOLE [Suspect]
     Indication: AGITATION
  3. CLONAZEPAM [Suspect]
     Indication: INSOMNIA
  4. ESCITALOPRAM [Suspect]
     Indication: INSOMNIA

REACTIONS (4)
  - DYSTONIA [None]
  - JOINT DISLOCATION [None]
  - SALIVARY HYPERSECRETION [None]
  - SEDATION [None]
